FAERS Safety Report 24265337 (Version 4)
Quarter: 2024Q4

REPORT INFORMATION
  Report Type: Spontaneous
  Country: JP (occurrence: JP)
  Receive Date: 20240829
  Receipt Date: 20241030
  Transmission Date: 20250114
  Serious: Yes (Other)
  Sender: EISAI
  Company Number: JP-Eisai-202406473_LEN-RCC_P_1

PATIENT
  Sex: Male

DRUGS (3)
  1. LENVIMA [Suspect]
     Active Substance: LENVATINIB
     Indication: Renal cancer
     Dosage: DOSE AND FREQUENCY UNKNOWN
     Route: 048
     Dates: end: 2024
  2. LENVIMA [Suspect]
     Active Substance: LENVATINIB
     Dosage: DOSE REDUCED (DOSE AND FREQUENCY UNKNOWN)
     Route: 048
     Dates: start: 2024
  3. KEYTRUDA [Suspect]
     Active Substance: PEMBROLIZUMAB
     Indication: Renal cancer
     Route: 041

REACTIONS (1)
  - Meningitis noninfective [Recovered/Resolved]
